FAERS Safety Report 9560272 (Version 1)
Quarter: 2013Q3

REPORT INFORMATION
  Report Type: Spontaneous
  Country: GB (occurrence: GB)
  Receive Date: 20130927
  Receipt Date: 20130927
  Transmission Date: 20140515
  Serious: Yes (Hospitalization, Other)
  Sender: FDA-Public Use
  Company Number: GB-ELI_LILLY_AND_COMPANY-GB201309005881

PATIENT
  Age: 70 Year
  Sex: Female

DRUGS (9)
  1. FLUOXETINE [Suspect]
     Indication: DEPRESSION
     Dosage: 20 MG, QD
     Route: 048
     Dates: start: 20070813
  2. FLUOXETINE [Suspect]
     Dosage: 60 MG, QD
     Route: 048
     Dates: start: 20070830
  3. DOSULEPIN [Suspect]
     Indication: DEPRESSION
     Dosage: 150 MG, QD
     Route: 048
  4. DOSULEPIN [Suspect]
     Dosage: 75 MG, EACH EVENING
  5. ALENDRONIC ACID [Concomitant]
     Dosage: 1 DF, UNKNOWN
  6. CLOPIDOGREL [Concomitant]
     Dosage: 75 MG, QD
  7. FOLIC ACID [Concomitant]
     Dosage: 5 MG, QD
  8. MORPHINE SULPHATE [Concomitant]
     Dosage: 30 MG, BID
  9. PREDNISOLONE [Concomitant]
     Dosage: 1 DF, UNKNOWN

REACTIONS (3)
  - Neoplasm [Unknown]
  - Fall [Recovering/Resolving]
  - Balance disorder [Not Recovered/Not Resolved]
